FAERS Safety Report 8710766 (Version 2)
Quarter: 2012Q4

REPORT INFORMATION
  Report Type: Report from Study
  Country: FR (occurrence: FR)
  Receive Date: 20120807
  Receipt Date: 20120926
  Transmission Date: 20130627
  Serious: Yes (Hospitalization)
  Sender: FDA-Public Use
  Company Number: PHHY2012FR067135

PATIENT
  Sex: Female
  Weight: 78 kg

DRUGS (1)
  1. INTERFERON BETA-1B [Suspect]
     Indication: MULTIPLE SCLEROSIS
     Dosage: 1 ml, daily
     Route: 058
     Dates: start: 20120401

REACTIONS (4)
  - Lhermitte^s sign [Recovered/Resolved]
  - Dysaesthesia [Recovered/Resolved]
  - Anaesthesia [Recovered/Resolved]
  - Drug prescribing error [Unknown]
